FAERS Safety Report 8231251-6 (Version None)
Quarter: 2012Q1

REPORT INFORMATION
  Report Type: 
  Country: None (occurrence: None)
  Receive Date: 20120320
  Receipt Date: 20120307
  Transmission Date: 20120608
  Serious: Yes (Other)
  Sender: FDA-Public Use
  Company Number: CIP02002304

PATIENT
  Age: 79 Year
  Sex: Female
  Weight: 49.4 kg

DRUGS (6)
  1. PREDNISONE TAB [Concomitant]
  2. ACTONEL [Suspect]
     Indication: OSTEOPOROSIS
     Dosage: 5 MG, DAILY, ORAL
     Route: 048
     Dates: start: 20040101
  3. PEPCID [Concomitant]
  4. FLOVENT [Concomitant]
  5. CENTRUM SILVER /01292501/ (ASCORBIC ACID, CALCIUM, MINERALS NOS, RETIN [Concomitant]
  6. ACTONEL [Suspect]
     Indication: OSTEOPOROSIS
     Dosage: 35 MG, ONCE WEEKLY, ORAL
     Route: 048
     Dates: start: 20020101

REACTIONS (6)
  - ABDOMINAL DISCOMFORT [None]
  - DYSPEPSIA [None]
  - CHEST PAIN [None]
  - NAUSEA [None]
  - ERUCTATION [None]
  - ESSENTIAL THROMBOCYTHAEMIA [None]
